FAERS Safety Report 8583896-1 (Version None)
Quarter: 2012Q3

REPORT INFORMATION
  Report Type: 
  Country: None (occurrence: None)
  Receive Date: 20120810
  Receipt Date: 20120802
  Transmission Date: 20120928
  Serious: Yes (Life-Threatening)
  Sender: FDA-Public Use
  Company Number: DE-MERCK-1208DEU003730

PATIENT

DRUGS (1)
  1. POSACONAZOLE [Suspect]
     Indication: PROPHYLAXIS
     Dosage: 300 MG, BID
     Route: 042
     Dates: start: 20120730, end: 20120802

REACTIONS (2)
  - PULMONARY MYCOSIS [None]
  - PYREXIA [None]
